FAERS Safety Report 8182542-9 (Version None)
Quarter: 2012Q1

REPORT INFORMATION
  Report Type: 
  Country: None (occurrence: None)
  Receive Date: 20120305
  Receipt Date: 20120227
  Transmission Date: 20120608
  Serious: No
  Sender: FDA-Public Use
  Company Number: US-BIOGENIDEC-2012BI007202

PATIENT
  Age: 35 Year
  Sex: Female

DRUGS (3)
  1. TYSABRI [Suspect]
     Indication: MULTIPLE SCLEROSIS
     Route: 042
     Dates: start: 20071217, end: 20080612
  2. TYSABRI [Suspect]
     Route: 042
     Dates: start: 20090827, end: 20100108
  3. TYSABRI [Suspect]
     Route: 042
     Dates: start: 20111021

REACTIONS (1)
  - PRURITUS [None]
